FAERS Safety Report 10851278 (Version 1)
Quarter: 2015Q1

REPORT INFORMATION
  Report Type: Spontaneous
  Country: US (occurrence: US)
  Receive Date: 20150222
  Receipt Date: 20150222
  Transmission Date: 20150721
  Serious: No
  Sender: FDA-Public Use
  Company Number: US-ALLERGAN-1408739US

PATIENT
  Age: 43 Year
  Sex: Female

DRUGS (5)
  1. CELEBREX [Concomitant]
     Active Substance: CELECOXIB
  2. SYNTHROID [Concomitant]
     Active Substance: LEVOTHYROXINE SODIUM
  3. AMBIEN [Concomitant]
     Active Substance: ZOLPIDEM TARTRATE
  4. BOTOX COSMETIC [Suspect]
     Active Substance: ONABOTULINUMTOXINA
     Indication: SKIN WRINKLING
  5. ZOLOFT [Concomitant]
     Active Substance: SERTRALINE HYDROCHLORIDE

REACTIONS (3)
  - Vision blurred [Not Recovered/Not Resolved]
  - Photophobia [Not Recovered/Not Resolved]
  - Balance disorder [Not Recovered/Not Resolved]
